FAERS Safety Report 6662477-0 (Version None)
Quarter: 2010Q1

REPORT INFORMATION
  Report Type: 
  Country: None (occurrence: None)
  Receive Date: 20100331
  Receipt Date: 20100317
  Transmission Date: 20100710
  Serious: Yes (Hospitalization)
  Sender: FDA-Public Use
  Company Number: SE-MERCK-0201SWE00020

PATIENT
  Age: 76 Year
  Sex: Male

DRUGS (11)
  1. ZOCOR [Suspect]
     Indication: CARDIAC DISORDER
     Route: 048
     Dates: start: 19970101, end: 20010730
  2. COZAAR [Suspect]
     Indication: CARDIAC DISORDER
     Route: 048
     Dates: end: 20010601
  3. COZAAR [Suspect]
     Route: 048
     Dates: start: 20010601, end: 20010730
  4. METOPROLOL TARTRATE [Suspect]
     Indication: CARDIAC DISORDER
     Route: 048
     Dates: end: 20010730
  5. ALLOPURINOL [Suspect]
     Route: 048
     Dates: end: 20010730
  6. AMIODARONE HYDROCHLORIDE [Concomitant]
     Route: 065
  7. WARFARIN SODIUM [Concomitant]
     Route: 065
  8. POTASSIUM CHLORIDE [Concomitant]
     Route: 065
  9. FUROSEMIDE [Concomitant]
     Route: 065
  10. PROSCAR [Concomitant]
     Route: 065
  11. LANSOPRAZOLE [Concomitant]
     Route: 065

REACTIONS (2)
  - BLOOD CREATININE INCREASED [None]
  - RHABDOMYOLYSIS [None]
